FAERS Safety Report 9781378 (Version 1)
Quarter: 2013Q4

REPORT INFORMATION
  Report Type: Spontaneous
  Country: US (occurrence: None)
  Receive Date: 20131223
  Receipt Date: 20131223
  Transmission Date: 20140711
  Serious: Yes (Disabling)
  Sender: FDA-Public Use
  Company Number: None

PATIENT
  Age: 67 Year
  Sex: Female
  Weight: 45.81 kg

DRUGS (18)
  1. PROLIA [Suspect]
     Indication: OSTEOPOROSIS
     Dosage: EVERY 6 MONTHS
     Route: 058
     Dates: start: 20131004, end: 20131004
  2. BUTALBITAL-ACETAMINOPHEN-CAFF [Concomitant]
  3. LOSARTAN [Concomitant]
  4. METOPROLOL SUCCINATE [Concomitant]
  5. MIRTAZAPINE [Concomitant]
  6. NITROGLYCERIN (NITROSTAT) [Concomitant]
  7. PANTOPRAZOLE [Concomitant]
  8. PRASUGREL (EFFIENT) [Concomitant]
  9. RANITIDINE HCL [Concomitant]
  10. SIMVASTATIN [Concomitant]
  11. SUCRALFATE [Concomitant]
  12. TEMAZEPAM (RESTORIL) [Concomitant]
  13. TORSEMIDE [Concomitant]
  14. ASPIRIN [Concomitant]
  15. CALCIUM CARBONATE-VITAMIN D3 [Concomitant]
  16. DOCUSATE SODIUM [Concomitant]
  17. MULTIVITAMIN-MINERALS-LUTEIN (CENTRUM SILVER) [Concomitant]
  18. SENNOSIDES [Concomitant]

REACTIONS (3)
  - Abdominal pain [None]
  - Decreased appetite [None]
  - Weight gain poor [None]
